FAERS Safety Report 8283393 (Version 7)
Quarter: 2015Q2

REPORT INFORMATION
  Report Type: Report from Study
  Country: JP (occurrence: JP)
  Receive Date: 20111212
  Receipt Date: 20150602
  Transmission Date: 20150821
  Serious: Yes (Death, Life-Threatening, Hospitalization)
  Sender: FDA-Public Use
  Company Number: JP-PFIZER INC-2011295789

PATIENT
  Age: 59 Year
  Sex: Male
  Weight: 66 kg

DRUGS (28)
  1. CHLOMY-P [Concomitant]
     Indication: DECUBITUS ULCER
     Dosage: UNK
     Dates: start: 20110920, end: 20111124
  2. PURSENNID [Concomitant]
     Active Substance: SENNOSIDES A AND B
     Indication: CONSTIPATION
     Dosage: 24 MG, 1X/DAY
     Route: 048
     Dates: start: 20111001, end: 20111020
  3. TEMSIROLIMUS [Suspect]
     Active Substance: TEMSIROLIMUS
     Indication: METASTATIC RENAL CELL CARCINOMA
     Dosage: 25 MG, CYCLIC, WEEKLY
     Route: 042
     Dates: start: 20110823, end: 20111025
  4. ZOMETA [Concomitant]
     Active Substance: ZOLEDRONIC ACID
     Indication: RENAL CELL CARCINOMA
     Dosage: 4 MG, 1X/DAY
     Route: 042
     Dates: start: 20110812, end: 20110812
  5. ZOMETA [Concomitant]
     Active Substance: ZOLEDRONIC ACID
     Dosage: 4 MG, 1X/DAY
     Route: 042
     Dates: start: 20111108, end: 20111108
  6. MAGNESIUM OXIDE. [Concomitant]
     Active Substance: MAGNESIUM OXIDE
     Indication: CONSTIPATION
     Dosage: 330 MG, 3X/DAY
     Route: 048
     Dates: end: 20111020
  7. FENTANYL CITRATE. [Concomitant]
     Active Substance: FENTANYL CITRATE
     Indication: RENAL CELL CARCINOMA
     Dosage: 2 MG, 1X/DAY
     Route: 062
     Dates: start: 20111022, end: 20111109
  8. POLARAMINE [Concomitant]
     Active Substance: DEXCHLORPHENIRAMINE MALEATE
     Indication: PROPHYLAXIS
     Dosage: 5 MG, WEEKLY
     Route: 042
     Dates: start: 20110823, end: 20111025
  9. DEPAS [Concomitant]
     Active Substance: ETIZOLAM
     Indication: MENTAL DISORDER
     Dosage: 0.5 MG, 3X/DAY
     Route: 048
     Dates: end: 20111020
  10. LOXONIN [Concomitant]
     Active Substance: LOXOPROFEN SODIUM
     Indication: RENAL CELL CARCINOMA
  11. ZOMETA [Concomitant]
     Active Substance: ZOLEDRONIC ACID
     Dosage: 4 MG, 1X/DAY
     Route: 042
     Dates: start: 20111012, end: 20111012
  12. LOXONIN [Concomitant]
     Active Substance: LOXOPROFEN SODIUM
     Indication: CANCER PAIN
     Dosage: 60 MG, 3X/DAY
     Route: 048
     Dates: end: 20111020
  13. LOXONIN [Concomitant]
     Active Substance: LOXOPROFEN SODIUM
     Indication: PHARYNGITIS
  14. OXINORM (OXYCODONE HYDROCHLORIDE) [Concomitant]
     Active Substance: OXYCODONE HYDROCHLORIDE
     Indication: CANCER PAIN
     Dosage: 5 MG, AS NEEDED
     Route: 048
     Dates: start: 20110913
  15. POSTERISAN FORTE [Concomitant]
     Active Substance: LIDOCAINE
     Indication: HAEMORRHOIDS
     Dosage: 2 G, DAILY
     Dates: start: 20110922, end: 20111110
  16. DECADRON [Concomitant]
     Active Substance: DEXAMETHASONE
     Indication: METASTASES TO CENTRAL NERVOUS SYSTEM
     Dosage: 0.5 MG, 1X/DAY
     Route: 048
     Dates: end: 20111020
  17. ZOMETA [Concomitant]
     Active Substance: ZOLEDRONIC ACID
     Dosage: 4 MG, 1X/DAY
     Route: 042
     Dates: start: 20110927, end: 20110927
  18. OXINORM (OXYCODONE HYDROCHLORIDE) [Concomitant]
     Active Substance: OXYCODONE HYDROCHLORIDE
     Indication: RENAL CELL CARCINOMA
     Dosage: 2.5 MG, AS NEEDED
     Route: 048
     Dates: end: 20110912
  19. OXINORM (OXYCODONE HYDROCHLORIDE) [Concomitant]
     Active Substance: OXYCODONE HYDROCHLORIDE
     Indication: PHARYNGITIS
  20. VOLTAREN [Concomitant]
     Active Substance: DICLOFENAC SODIUM
     Indication: CANCER PAIN
  21. ZOMETA [Concomitant]
     Active Substance: ZOLEDRONIC ACID
     Indication: HYPERKALAEMIA
     Dosage: 4 MG, 1X/DAY
     Route: 042
     Dates: start: 20110830, end: 20110830
  22. TAKEPRON [Concomitant]
     Active Substance: LANSOPRAZOLE
     Indication: PROPHYLAXIS AGAINST GASTROINTESTINAL ULCER
     Dosage: 15 MG, 1X/DAY
     Route: 048
     Dates: end: 20111020
  23. FENTANYL CITRATE. [Concomitant]
     Active Substance: FENTANYL CITRATE
     Indication: CANCER PAIN
     Dosage: 1 MG, 1X/DAY
     Route: 062
     Dates: end: 20111021
  24. VOLTAREN [Concomitant]
     Active Substance: DICLOFENAC SODIUM
     Indication: PHARYNGITIS
  25. AZUNOL [Concomitant]
     Active Substance: SODIUM GUALENATE
     Indication: DECUBITUS ULCER
     Dosage: UNK
     Route: 062
     Dates: start: 20110920, end: 20111124
  26. DECADRON [Concomitant]
     Active Substance: DEXAMETHASONE
     Indication: PROPHYLAXIS
     Dosage: 8 MG, WEEKLY
     Route: 042
     Dates: start: 20110823, end: 20111025
  27. PRIMPERAN [Concomitant]
     Active Substance: METOCLOPRAMIDE HYDROCHLORIDE
     Indication: NAUSEA
     Dosage: 5 MG, 3X/DAY
     Route: 048
     Dates: end: 20111020
  28. VOLTAREN [Concomitant]
     Active Substance: DICLOFENAC SODIUM
     Indication: RENAL CELL CARCINOMA
     Dosage: 25 MG, AS NEEDED
     Route: 054
     Dates: start: 20110623

REACTIONS (6)
  - Disease progression [Fatal]
  - Dysphagia [Recovering/Resolving]
  - Pharyngitis [Recovering/Resolving]
  - Metastatic renal cell carcinoma [Fatal]
  - Inappropriate antidiuretic hormone secretion [Not Recovered/Not Resolved]
  - Hyponatraemia [Not Recovered/Not Resolved]

NARRATIVE: CASE EVENT DATE: 20111014
